FAERS Safety Report 5963807-5 (Version None)
Quarter: 2008Q4

REPORT INFORMATION
  Report Type: 
  Country: None (occurrence: None)
  Receive Date: 20081120
  Receipt Date: 20081113
  Transmission Date: 20090506
  Serious: Yes (Hospitalization)
  Sender: FDA-Public Use
  Company Number: 2008SP001985

PATIENT
  Age: 71 Year
  Sex: Female
  Weight: 42 kg

DRUGS (28)
  1. TEMODAL [Suspect]
     Indication: DISEASE RECURRENCE
     Dosage: 150 MG/M2; QD; PO
     Route: 048
     Dates: start: 20061117, end: 20061121
  2. TEMODAL [Suspect]
     Indication: GLIOBLASTOMA MULTIFORME
     Dosage: 150 MG/M2; QD; PO
     Route: 048
     Dates: start: 20061117, end: 20061121
  3. TEMODAL [Suspect]
     Indication: DISEASE RECURRENCE
     Dosage: 150 MG/M2; QD; PO
     Route: 048
     Dates: start: 20061216, end: 20061220
  4. TEMODAL [Suspect]
     Indication: GLIOBLASTOMA MULTIFORME
     Dosage: 150 MG/M2; QD; PO
     Route: 048
     Dates: start: 20061216, end: 20061220
  5. TEMODAL [Suspect]
     Indication: DISEASE RECURRENCE
     Dosage: 150 MG/M2; QD; PO
     Route: 048
     Dates: start: 20070112, end: 20070116
  6. TEMODAL [Suspect]
     Indication: GLIOBLASTOMA MULTIFORME
     Dosage: 150 MG/M2; QD; PO
     Route: 048
     Dates: start: 20070112, end: 20070116
  7. TEMODAL [Suspect]
     Indication: DISEASE RECURRENCE
     Dosage: 150 MG/M2; QD; PO
     Route: 048
     Dates: start: 20070223, end: 20070227
  8. TEMODAL [Suspect]
     Indication: GLIOBLASTOMA MULTIFORME
     Dosage: 150 MG/M2; QD; PO
     Route: 048
     Dates: start: 20070223, end: 20070227
  9. TEMODAL [Suspect]
     Indication: DISEASE RECURRENCE
     Dosage: 150 MG/M2; QD; PO
     Route: 048
     Dates: start: 20070323, end: 20070327
  10. TEMODAL [Suspect]
     Indication: GLIOBLASTOMA MULTIFORME
     Dosage: 150 MG/M2; QD; PO
     Route: 048
     Dates: start: 20070323, end: 20070327
  11. TEMODAL [Suspect]
     Indication: DISEASE RECURRENCE
     Dosage: 150 MG/M2; QD; PO
     Route: 048
     Dates: start: 20070419, end: 20070423
  12. TEMODAL [Suspect]
     Indication: GLIOBLASTOMA MULTIFORME
     Dosage: 150 MG/M2; QD; PO
     Route: 048
     Dates: start: 20070419, end: 20070423
  13. TEMODAL [Suspect]
     Indication: DISEASE RECURRENCE
     Dosage: 150 MG/M2; QD; PO
     Route: 048
     Dates: start: 20070523, end: 20070527
  14. TEMODAL [Suspect]
     Indication: GLIOBLASTOMA MULTIFORME
     Dosage: 150 MG/M2; QD; PO
     Route: 048
     Dates: start: 20070523, end: 20070527
  15. TEMODAL [Suspect]
     Indication: DISEASE RECURRENCE
     Dosage: 150 MG/M2; QD; PO
     Route: 048
     Dates: start: 20070622, end: 20070626
  16. TEMODAL [Suspect]
     Indication: GLIOBLASTOMA MULTIFORME
     Dosage: 150 MG/M2; QD; PO
     Route: 048
     Dates: start: 20070622, end: 20070626
  17. TEMODAL [Suspect]
     Indication: DISEASE RECURRENCE
     Dosage: 150 MG/M2; QD; PO
     Route: 048
     Dates: start: 20070720, end: 20070724
  18. TEMODAL [Suspect]
     Indication: GLIOBLASTOMA MULTIFORME
     Dosage: 150 MG/M2; QD; PO
     Route: 048
     Dates: start: 20070720, end: 20070724
  19. TEMODAL [Suspect]
     Indication: DISEASE RECURRENCE
     Dosage: 150 MG/M2; QD; PO
     Route: 048
     Dates: start: 20070817, end: 20070821
  20. TEMODAL [Suspect]
     Indication: GLIOBLASTOMA MULTIFORME
     Dosage: 150 MG/M2; QD; PO
     Route: 048
     Dates: start: 20070817, end: 20070821
  21. TEMODAL [Suspect]
     Indication: DISEASE RECURRENCE
     Dosage: 150 MG/M2; QD; PO
     Route: 048
     Dates: start: 20070914, end: 20070918
  22. TEMODAL [Suspect]
     Indication: GLIOBLASTOMA MULTIFORME
     Dosage: 150 MG/M2; QD; PO
     Route: 048
     Dates: start: 20070914, end: 20070918
  23. PREDNISONE [Suspect]
     Indication: DISEASE RECURRENCE
     Dosage: PO
     Route: 048
  24. PREDNISONE [Suspect]
     Indication: GLIOBLASTOMA MULTIFORME
     Dosage: PO
     Route: 048
  25. ALEVIATIN [Concomitant]
  26. RANITAC [Concomitant]
  27. MAGNESIUM OXIDE [Concomitant]
  28. ZOFRAN ZYDIS [Concomitant]

REACTIONS (1)
  - PNEUMONIA [None]
